FAERS Safety Report 9258219 (Version 1)
Quarter: 2013Q2

REPORT INFORMATION
  Report Type: Spontaneous
  Country: US (occurrence: US)
  Receive Date: 20130426
  Receipt Date: 20130426
  Transmission Date: 20140414
  Serious: No
  Sender: FDA-Public Use
  Company Number: US-JNJFOC-20130408352

PATIENT
  Sex: Female
  Weight: 58.97 kg

DRUGS (6)
  1. DURAGESIC [Suspect]
     Indication: PAIN
     Route: 062
     Dates: start: 2002
  2. DURAGESIC [Suspect]
     Indication: PAIN
     Route: 062
  3. DURAGESIC [Suspect]
     Indication: PAIN
     Route: 062
  4. DURAGESIC [Suspect]
     Indication: PAIN
     Route: 062
  5. NEURONTIN [Concomitant]
     Route: 065
  6. LYRICA [Concomitant]
     Route: 065

REACTIONS (7)
  - Wrong technique in drug usage process [Recovered/Resolved]
  - Application site irritation [Recovered/Resolved]
  - Drug administered at inappropriate site [Recovered/Resolved]
  - Hyperhidrosis [Unknown]
  - Wrong technique in drug usage process [Unknown]
  - Product quality issue [Unknown]
  - Withdrawal syndrome [Unknown]
